FAERS Safety Report 16458906 (Version 1)
Quarter: 2019Q2

REPORT INFORMATION
  Report Type: Spontaneous
  Country: US (occurrence: US)
  Receive Date: 20190620
  Receipt Date: 20190620
  Transmission Date: 20190711
  Serious: No
  Sender: FDA-Public Use
  Company Number: US-THERAPEUTICSMD-2019TMD00965

PATIENT
  Age: 67 Year
  Sex: Female
  Weight: 79.37 kg

DRUGS (12)
  1. ATORVASTATIN [Concomitant]
     Active Substance: ATORVASTATIN
  2. MULTIVITAMIN [Concomitant]
     Active Substance: VITAMINS
  3. FISH OIL [Concomitant]
     Active Substance: FISH OIL
  4. PROBIOTIC [Concomitant]
     Active Substance: PROBIOTICS NOS
  5. MELOXICAM. [Concomitant]
     Active Substance: MELOXICAM
  6. MELATONIN [Concomitant]
     Active Substance: MELATONIN
  7. BENADRYL [Concomitant]
     Active Substance: DIPHENHYDRAMINE HYDROCHLORIDE
  8. IMVEXXY [Suspect]
     Active Substance: ESTRADIOL
     Dosage: 10 ?G, ONCE
     Route: 048
     Dates: start: 20190512, end: 20190512
  9. ASPIRIN. [Concomitant]
     Active Substance: ASPIRIN
  10. CALCIUM [Concomitant]
     Active Substance: CALCIUM
  11. MAGNESIUM [Concomitant]
     Active Substance: MAGNESIUM
  12. IMVEXXY [Suspect]
     Active Substance: ESTRADIOL
     Indication: ATROPHIC VULVOVAGINITIS
     Dosage: 10 ?G, 2X/MONTH (EVERY 2 WEEKS)
     Dates: start: 201903

REACTIONS (4)
  - Contraindicated product prescribed [Not Recovered/Not Resolved]
  - Nausea [Not Recovered/Not Resolved]
  - Incorrect route of product administration [Recovered/Resolved]
  - Off label use [Not Recovered/Not Resolved]

NARRATIVE: CASE EVENT DATE: 201903
